FAERS Safety Report 6548953-X (Version None)
Quarter: 2010Q1

REPORT INFORMATION
  Report Type: 
  Country: None (occurrence: None)
  Receive Date: 20100125
  Receipt Date: 20100111
  Transmission Date: 20100710
  Serious: Yes (Other)
  Sender: FDA-Public Use
  Company Number: AU-RANBAXY-2010RR-30418

PATIENT
  Age: 74 Year
  Sex: Male

DRUGS (7)
  1. AMLODIPINE [Suspect]
     Indication: MEDICATION ERROR
     Dosage: 10 MG, UNK
  2. AMLODIPINE [Suspect]
  3. IMATINIB [Suspect]
     Indication: CHRONIC MYELOID LEUKAEMIA
     Dosage: 400 MG, BID
  4. PERINDOPRIL [Suspect]
     Dosage: 4 MG, UNK
  5. IMATINIB [Concomitant]
     Dosage: 400 MG, UNK
  6. IMATINIB [Concomitant]
     Dosage: 600 MG, UNK
  7. ATORVASTATIN CALCIUM [Concomitant]
     Dosage: 40 MG, UNK

REACTIONS (5)
  - ANGIOEDEMA [None]
  - DRUG INTERACTION [None]
  - NAUSEA [None]
  - NEUROPATHY PERIPHERAL [None]
  - PALPITATIONS [None]
